FAERS Safety Report 5614427-3 (Version None)
Quarter: 2008Q1

REPORT INFORMATION
  Report Type: 
  Country: None (occurrence: None)
  Receive Date: 20080130
  Receipt Date: 20080125
  Transmission Date: 20080703
  Serious: Yes (Death)
  Sender: FDA-Public Use
  Company Number: TCI2008A00158

PATIENT
  Age: 82 Year
  Sex: Male

DRUGS (3)
  1. LEUPROLIDE ACETATE [Suspect]
     Indication: PROSTATE CANCER STAGE IV
     Dosage: 11.25 MG (11. 25 MG,1 IN 12 WK)
     Route: 058
     Dates: start: 20060620, end: 20060912
  2. FLUTAMIDE [Concomitant]
  3. HARNAL D (TAMSULOSIN HYDROCHLORIDE) (TABLETS) [Concomitant]

REACTIONS (1)
  - CARDIAC FAILURE [None]
